FAERS Safety Report 8991430 (Version 1)
Quarter: 2012Q4

REPORT INFORMATION
  Report Type: 
  Country: BR (occurrence: BR)
  Receive Date: 20121229
  Receipt Date: 20121229
  Transmission Date: 20130627
  Serious: Yes (Other)
  Sender: FDA-Public Use
  Company Number: BR-009507513-1212BRA010850

PATIENT
  Sex: Male

DRUGS (3)
  1. VICTRELIS [Suspect]
     Dosage: UNK
     Route: 048
     Dates: start: 20120522
  2. RIBAVIRIN [Suspect]
     Route: 048
  3. INTERFERON (UNSPECIFIED) [Concomitant]

REACTIONS (1)
  - Liver transplant [Recovered/Resolved]
